FAERS Safety Report 7358335-9 (Version None)
Quarter: 2011Q1

REPORT INFORMATION
  Report Type: 
  Country: None (occurrence: None)
  Receive Date: 20110317
  Receipt Date: 20110304
  Transmission Date: 20110831
  Serious: Yes (Hospitalization, Other)
  Sender: FDA-Public Use
  Company Number: PHHY2011US18340

PATIENT
  Sex: Female
  Weight: 147 kg

DRUGS (8)
  1. DIOVAN [Concomitant]
  2. PLAVIX [Concomitant]
  3. GLEEVEC [Concomitant]
  4. NORVASC [Concomitant]
  5. EXELON [Suspect]
     Dosage: 4.6 MG/ 24 HRS
     Route: 062
  6. ASPIRIN [Concomitant]
  7. NAMENDA [Concomitant]
  8. ANTIVERT [Concomitant]

REACTIONS (10)
  - VENTRICULAR EXTRASYSTOLES [None]
  - EXTRASYSTOLES [None]
  - VENTRICULAR TACHYCARDIA [None]
  - BLOOD PRESSURE INCREASED [None]
  - MEMORY IMPAIRMENT [None]
  - LIP INJURY [None]
  - EYE INJURY [None]
  - LOSS OF CONSCIOUSNESS [None]
  - TRAUMATIC HAEMATOMA [None]
  - SYNCOPE [None]
